FAERS Safety Report 5741446-9 (Version None)
Quarter: 2008Q2

REPORT INFORMATION
  Report Type: 
  Country: None (occurrence: None)
  Receive Date: 20080518
  Receipt Date: 20080429
  Transmission Date: 20081010
  Serious: Yes (Hospitalization)
  Sender: FDA-Public Use
  Company Number: FR-TYCO HEALTHCARE/MALLINCKRODT-T200800824

PATIENT

DRUGS (8)
  1. OPTIJECT [Suspect]
     Indication: SCAN
     Dosage: UNK, SINGLE
     Route: 042
     Dates: start: 20071220, end: 20071220
  2. PROTELOS                           /01556702/ [Suspect]
     Route: 048
     Dates: start: 20070501, end: 20080115
  3. EFFEXOR [Suspect]
     Dosage: 75 MG, QD
     Route: 048
     Dates: start: 20070601, end: 20080115
  4. KARDEGIC                           /00002703/ [Concomitant]
  5. TENORDATE [Concomitant]
  6. NEXIUM [Concomitant]
  7. LEXOMIL [Concomitant]
  8. DOLIPRANE [Concomitant]

REACTIONS (2)
  - PRURITUS [None]
  - RASH MACULO-PAPULAR [None]
